FAERS Safety Report 8186644-2 (Version None)
Quarter: 2012Q1

REPORT INFORMATION
  Report Type: 
  Country: None (occurrence: None)
  Receive Date: 20120302
  Receipt Date: 20120302
  Transmission Date: 20120608
  Serious: Yes (Hospitalization)
  Sender: FDA-Public Use
  Company Number: None

PATIENT
  Sex: Male
  Weight: 103.3 kg

DRUGS (5)
  1. TAXOL [Suspect]
     Dosage: 434 MG
     Dates: end: 20120206
  2. BEVACIZUMAB (RHUMAB VEGF) [Suspect]
     Dosage: 1550 MG
     Dates: end: 20120206
  3. ZOLEDRONIC ACID [Concomitant]
  4. CARBOPLATIN [Suspect]
     Dosage: 713 MG
     Dates: end: 20120206
  5. NAPROXEN [Concomitant]

REACTIONS (4)
  - NEUTROPENIA [None]
  - ANAEMIA [None]
  - RENAL FAILURE ACUTE [None]
  - DEHYDRATION [None]
